FAERS Safety Report 24985766 (Version 1)
Quarter: 2025Q1

REPORT INFORMATION
  Report Type: Report from Study
  Country: CA (occurrence: CA)
  Receive Date: 20250219
  Receipt Date: 20250219
  Transmission Date: 20250409
  Serious: Yes (Other)
  Sender: SANDOZ
  Company Number: CA-002147023-NVSC2023CA052230

PATIENT
  Sex: Male
  Weight: 90.71 kg

DRUGS (2)
  1. HYRIMOZ [Suspect]
     Active Substance: ADALIMUMAB-ADAZ
     Dosage: 40 MG, Q2W
     Route: 058
     Dates: start: 20230226
  2. HYRIMOZ [Suspect]
     Active Substance: ADALIMUMAB-ADAZ
     Indication: Crohn^s disease
     Route: 058
     Dates: start: 20210919

REACTIONS (7)
  - Crohn^s disease [Unknown]
  - General physical health deterioration [Unknown]
  - Uveitis [Unknown]
  - Diarrhoea [Unknown]
  - Arthralgia [Unknown]
  - Aphthous ulcer [Recovered/Resolved]
  - Photosensitivity reaction [Unknown]
